FAERS Safety Report 5959712-0 (Version None)
Quarter: 2008Q4

REPORT INFORMATION
  Report Type: 
  Country: None (occurrence: None)
  Receive Date: 20081120
  Receipt Date: 20081113
  Transmission Date: 20090506
  Serious: Yes (Life-Threatening, Hospitalization)
  Sender: FDA-Public Use
  Company Number: DE-JNJFOC-20081102794

PATIENT
  Age: 21 Year
  Sex: Female

DRUGS (3)
  1. REMICADE [Suspect]
     Indication: COLITIS ULCERATIVE
  2. AZATHIOPRINE [Concomitant]
     Indication: COLITIS ULCERATIVE
  3. STEROIDS [Concomitant]
     Indication: COLITIS ULCERATIVE

REACTIONS (2)
  - CENTRAL NERVOUS SYSTEM LESION [None]
  - LOCKED-IN SYNDROME [None]
